FAERS Safety Report 8697011 (Version 2)
Quarter: 2013Q4

REPORT INFORMATION
  Report Type: Spontaneous
  Country: ES (occurrence: ES)
  Receive Date: 20120801
  Receipt Date: 20131101
  Transmission Date: 20140711
  Serious: Yes (Other)
  Sender: FDA-Public Use
  Company Number: ES-MSD-1207ESP012992

PATIENT
  Age: 48 Year
  Sex: Female
  Weight: 63 kg

DRUGS (3)
  1. PEGINTRON [Suspect]
     Indication: HEPATITIS C
     Route: 065
     Dates: start: 20120601
  2. RIBAVIRIN [Suspect]
     Indication: HEPATITIS C
     Route: 065
     Dates: start: 20120601
  3. TELAPREVIR [Suspect]
     Indication: HEPATITIS C
     Dosage: 2 COMPRIMIDOS/8 HORAS
     Route: 065
     Dates: start: 20120601, end: 20120716

REACTIONS (1)
  - Rash [Recovered/Resolved]
